FAERS Safety Report 20733946 (Version 1)
Quarter: 2022Q2

REPORT INFORMATION
  Report Type: Spontaneous
  Country: RU (occurrence: RU)
  Receive Date: 20220421
  Receipt Date: 20220421
  Transmission Date: 20220721
  Serious: Yes (Other)
  Sender: FDA-Public Use
  Company Number: RU-JNJFOC-20220435745

PATIENT
  Age: 29 Year
  Sex: Male

DRUGS (6)
  1. BEDAQUILINE [Suspect]
     Active Substance: BEDAQUILINE
     Indication: Product used for unknown indication
     Route: 048
  2. CAPREOMYCIN [Concomitant]
     Active Substance: CAPREOMYCIN
  3. TERIZIDONE [Concomitant]
     Active Substance: TERIZIDONE
  4. LINEZOLID [Concomitant]
     Active Substance: LINEZOLID
  5. MOXIFLOXACIN [Concomitant]
     Active Substance: MOXIFLOXACIN
  6. PYRAZINAMIDE [Concomitant]
     Active Substance: PYRAZINAMIDE

REACTIONS (1)
  - Liver injury [Not Recovered/Not Resolved]
